FAERS Safety Report 6829708-5 (Version None)
Quarter: 2010Q3

REPORT INFORMATION
  Report Type: 
  Country: None (occurrence: None)
  Receive Date: 20100709
  Receipt Date: 20070606
  Transmission Date: 20110219
  Serious: No
  Sender: FDA-Public Use
  Company Number: US-PFIZER INC-2007017751

PATIENT
  Sex: Female

DRUGS (1)
  1. CHANTIX [Suspect]
     Indication: SMOKING CESSATION THERAPY
     Dates: start: 20060901, end: 20061201

REACTIONS (8)
  - CRYING [None]
  - DYSGEUSIA [None]
  - IRRITABILITY [None]
  - MAJOR DEPRESSION [None]
  - MOOD SWINGS [None]
  - SLEEP DISORDER [None]
  - SOCIAL FEAR [None]
  - TEARFULNESS [None]
